FAERS Safety Report 23783045 (Version 1)
Quarter: 2024Q2

REPORT INFORMATION
  Report Type: Spontaneous
  Country: US (occurrence: None)
  Receive Date: 20240424
  Receipt Date: 20240424
  Transmission Date: 20240716
  Serious: No
  Sender: FDA-Public Use
  Company Number: None

PATIENT
  Age: 39 Year
  Sex: Female
  Weight: 86.4 kg

DRUGS (6)
  1. LOSARTAN POTASSIUM [Suspect]
     Active Substance: LOSARTAN POTASSIUM
     Indication: Hypertension
     Route: 048
     Dates: start: 20240308, end: 20240422
  2. Lantus Solo9star insulin [Concomitant]
  3. TRULICITY [Concomitant]
     Active Substance: DULAGLUTIDE
  4. Dexcom G7 CGM [Concomitant]
  5. Women^s One a Day Vitamin [Concomitant]
  6. VITAMIN D3 [Concomitant]
     Active Substance: CHOLECALCIFEROL

REACTIONS (7)
  - Visual impairment [None]
  - Vision blurred [None]
  - Visual snow syndrome [None]
  - Headache [None]
  - Therapy cessation [None]
  - Impaired driving ability [None]
  - Dyschromatopsia [None]

NARRATIVE: CASE EVENT DATE: 20240318
